FAERS Safety Report 20417503 (Version 3)
Quarter: 2022Q2

REPORT INFORMATION
  Report Type: Spontaneous
  Country: TW (occurrence: TW)
  Receive Date: 20220202
  Receipt Date: 20220602
  Transmission Date: 20220721
  Serious: No
  Sender: FDA-Public Use
  Company Number: TW-PFIZER INC-202200016398

PATIENT
  Age: 13 Year
  Sex: Female

DRUGS (1)
  1. GENOTROPIN [Suspect]
     Active Substance: SOMATROPIN
     Indication: Growth hormone deficiency
     Dosage: 3.4 IU, DAILY
     Route: 058
     Dates: start: 20190921, end: 20220104

REACTIONS (2)
  - Device information output issue [Unknown]
  - Device power source issue [Unknown]
